FAERS Safety Report 7439015-8 (Version None)
Quarter: 2011Q2

REPORT INFORMATION
  Report Type: 
  Country: None (occurrence: None)
  Receive Date: 20110427
  Receipt Date: 20110419
  Transmission Date: 20111010
  Serious: Yes (Hospitalization)
  Sender: FDA-Public Use
  Company Number: AR-BIOGENIDEC-2011BI013623

PATIENT
  Sex: Female

DRUGS (5)
  1. ASOTREX [Concomitant]
     Indication: ARTHRALGIA
     Route: 048
  2. TYSABRI [Suspect]
     Indication: MULTIPLE SCLEROSIS
     Route: 042
     Dates: start: 20100101
  3. TYSABRI [Suspect]
     Route: 042
     Dates: start: 20100101
  4. NSAID [Concomitant]
     Indication: ARTHRALGIA
     Route: 048
  5. SERTRALINE [Concomitant]
     Indication: DEPRESSION
     Route: 048

REACTIONS (1)
  - CONVERSION DISORDER [None]
